FAERS Safety Report 9960105 (Version 1)
Quarter: 2014Q1

REPORT INFORMATION
  Report Type: Spontaneous
  Country: US (occurrence: None)
  Receive Date: 20140228
  Receipt Date: 20140228
  Transmission Date: 20141002
  Serious: Yes (Hospitalization)
  Sender: FDA-Public Use
  Company Number: None

PATIENT
  Age: 23 Year
  Sex: Female
  Weight: 88.45 kg

DRUGS (4)
  1. MAKENA [Suspect]
     Indication: PREMATURE DELIVERY
     Dosage: 1 TIME USE, 350MG ONCE A WEEK, INTRAMUSCULAR
     Route: 030
  2. PRENATAL VITAMINS [Concomitant]
  3. ZOFRAN [Concomitant]
  4. PYRIDOXINE [Concomitant]

REACTIONS (3)
  - Drug eruption [None]
  - Swelling face [None]
  - Pruritus [None]
